FAERS Safety Report 5091919-X (Version None)
Quarter: 2006Q3

REPORT INFORMATION
  Report Type: 
  Country: None (occurrence: None)
  Receive Date: 20060825
  Receipt Date: 20060814
  Transmission Date: 20061208
  Serious: Yes (Other)
  Sender: FDA-Public Use
  Company Number: L06-ITA-03333-01

PATIENT
  Age: 38 Year
  Sex: Female

DRUGS (1)
  1. CARBAMAZEPINE [Suspect]
     Indication: BIPOLAR I DISORDER

REACTIONS (1)
  - SYSTEMIC LUPUS ERYTHEMATOSUS [None]
